FAERS Safety Report 15986689 (Version 4)
Quarter: 2019Q3

REPORT INFORMATION
  Report Type: Spontaneous
  Country: US (occurrence: US)
  Receive Date: 20190220
  Receipt Date: 20190910
  Transmission Date: 20191004
  Serious: Yes (Hospitalization)
  Sender: FDA-Public Use
  Company Number: US-ACTELION-A-NJ2019-186370

PATIENT
  Sex: Male

DRUGS (1)
  1. OPSUMIT [Suspect]
     Active Substance: MACITENTAN
     Indication: PULMONARY ARTERIAL HYPERTENSION
     Dosage: 10 MG, QD
     Route: 048
     Dates: start: 20170307

REACTIONS (7)
  - Gastrointestinal disorder [Unknown]
  - Abdominal distension [Unknown]
  - Fluid retention [Unknown]
  - Hospitalisation [Unknown]
  - Catheter placement [Unknown]
  - Inflammation [Unknown]
  - Gastric infection [Unknown]
